FAERS Safety Report 16936304 (Version 1)
Quarter: 2019Q4

REPORT INFORMATION
  Report Type: Report from Study
  Country: US (occurrence: US)
  Receive Date: 20191018
  Receipt Date: 20191018
  Transmission Date: 20200122
  Serious: Yes (Hospitalization, Other)
  Sender: FDA-Public Use
  Company Number: US-TAIHO ONCOLOGY  INC-EU-2019-03436

PATIENT
  Sex: Female
  Weight: 50.85 kg

DRUGS (2)
  1. LONSURF [Suspect]
     Active Substance: TIPIRACIL HYDROCHLORIDE\TRIFLURIDINE
     Indication: RECTAL CANCER
     Dosage: CYCLE 1-3. COMPLETED 3 CYCLES OF LONSURF. TREATMENT STARTED ^MAYBE 3-4 MONTHS AGO^.
     Route: 048
     Dates: start: 2019, end: 2019
  2. XARELTO [Suspect]
     Active Substance: RIVAROXABAN
     Indication: PERIPHERAL EMBOLISM
     Dates: start: 2019

REACTIONS (2)
  - Haemoglobin decreased [Unknown]
  - Peripheral embolism [Unknown]

NARRATIVE: CASE EVENT DATE: 2019
